FAERS Safety Report 8943375 (Version 1)
Quarter: 2012Q4

REPORT INFORMATION
  Report Type: 
  Country: IE (occurrence: IE)
  Receive Date: 20121204
  Receipt Date: 20121204
  Transmission Date: 20130627
  Serious: Yes (Hospitalization)
  Sender: FDA-Public Use
  Company Number: IE-PFIZER INC-2012300035

PATIENT
  Sex: Male

DRUGS (2)
  1. ZITHROMAX [Suspect]
     Dosage: UNK
  2. ZITHROMAX [Suspect]
     Dosage: UNK

REACTIONS (2)
  - Toxicity to various agents [Recovering/Resolving]
  - Hepatitis [Recovering/Resolving]
